FAERS Safety Report 17818967 (Version 1)
Quarter: 2020Q2

REPORT INFORMATION
  Report Type: Spontaneous
  Country: NL (occurrence: NL)
  Receive Date: 20200522
  Receipt Date: 20200522
  Transmission Date: 20200714
  Serious: Yes (Other)
  Sender: FDA-Public Use
  Company Number: NL-009507513-2005NLD003377

PATIENT
  Sex: Female

DRUGS (2)
  1. SIMVASTATIN. [Suspect]
     Active Substance: SIMVASTATIN
     Indication: PRODUCT USED FOR UNKNOWN INDICATION
     Dosage: 10 MG
     Route: 065
  2. PENICILLIN G [Suspect]
     Active Substance: PENICILLIN G
     Indication: PRODUCT USED FOR UNKNOWN INDICATION
     Dosage: UNK(COURSES)
     Route: 065

REACTIONS (6)
  - Lung neoplasm malignant [Not Recovered/Not Resolved]
  - Colon cancer [Unknown]
  - Drug intolerance [Unknown]
  - Endometrial cancer [Unknown]
  - Hepatic cancer [Unknown]
  - Pain [Unknown]
